FAERS Safety Report 15238581 (Version 5)
Quarter: 2021Q2

REPORT INFORMATION
  Report Type: Spontaneous
  Country: US (occurrence: US)
  Receive Date: 20180803
  Receipt Date: 20210607
  Transmission Date: 20210716
  Serious: Yes (Other)
  Sender: FDA-Public Use
  Company Number: US-COOPERSURGICAL, INC.-US-2018CPS032583

PATIENT
  Age: 21 Year
  Sex: Female
  Weight: 56.69 kg

DRUGS (3)
  1. PARAGARD T 380A [Suspect]
     Active Substance: COPPER
     Indication: CONTRACEPTION
     Dosage: UNK
     Route: 015
     Dates: start: 20100415, end: 20180518
  2. ORAL CONTRACEPTIVE NOS [Concomitant]
     Active Substance: UNSPECIFIED INGREDIENT
     Indication: CONTRACEPTION
     Dosage: UNK
     Route: 048
  3. RECLIPSEN [Concomitant]
     Active Substance: DESOGESTREL\ETHINYL ESTRADIOL
     Indication: PRODUCT USED FOR UNKNOWN INDICATION
     Dosage: UNK
     Route: 065

REACTIONS (15)
  - Anxiety [Unknown]
  - Foreign body in reproductive tract [Recovered/Resolved]
  - Emotional distress [Unknown]
  - Device use issue [Unknown]
  - Embedded device [Recovered/Resolved]
  - Pain [Recovered/Resolved]
  - Vaginal discharge [Unknown]
  - Device breakage [Recovered/Resolved]
  - Economic problem [Unknown]
  - Injury associated with device [Unknown]
  - Complication of device removal [Recovered/Resolved]
  - Anhedonia [Unknown]
  - Pelvic pain [Recovered/Resolved]
  - Intermenstrual bleeding [Unknown]
  - Dysmenorrhoea [Unknown]

NARRATIVE: CASE EVENT DATE: 20100513
